FAERS Safety Report 4878971-9 (Version None)
Quarter: 2006Q1

REPORT INFORMATION
  Report Type: 
  Country: None (occurrence: None)
  Receive Date: 20060112
  Receipt Date: 20051220
  Transmission Date: 20060701
  Serious: Yes (Death, Other)
  Sender: FDA-Public Use
  Company Number: US-MERCK-0512USA03336

PATIENT
  Age: 49 Year
  Sex: Female
  Weight: 105 kg

DRUGS (2)
  1. VIOXX [Suspect]
     Indication: PAIN
     Route: 048
     Dates: start: 20001120, end: 20001121
  2. IMURAN [Concomitant]
     Route: 065

REACTIONS (4)
  - CARDIAC ARREST [None]
  - MYOCARDIAL INFARCTION [None]
  - PULMONARY EMBOLISM [None]
  - RESPIRATORY ARREST [None]
